FAERS Safety Report 24902838 (Version 1)
Quarter: 2025Q1

REPORT INFORMATION
  Report Type: Report from Study
  Country: GB (occurrence: GB)
  Receive Date: 20250130
  Receipt Date: 20250130
  Transmission Date: 20250408
  Serious: Yes (Other)
  Sender: ROCHE
  Company Number: GB-ROCHE-3298617

PATIENT
  Sex: Male

DRUGS (1)
  1. TOCILIZUMAB [Suspect]
     Active Substance: TOCILIZUMAB
     Indication: Product used for unknown indication
     Dosage: 1 PER WEEK
     Route: 058
     Dates: start: 202211

REACTIONS (3)
  - Treatment noncompliance [Unknown]
  - Medication error [Unknown]
  - Cataract [Unknown]
